FAERS Safety Report 4723181-9 (Version None)
Quarter: 2005Q3

REPORT INFORMATION
  Report Type: 
  Country: None (occurrence: None)
  Receive Date: 20050719
  Receipt Date: 20041105
  Transmission Date: 20060218
  Serious: Yes (Hospitalization)
  Sender: FDA-Public Use
  Company Number: 2004231114US

PATIENT
  Age: 76 Year
  Sex: Female
  Weight: 86.2 kg

DRUGS (1)
  1. CELEBREX [Suspect]
     Indication: OSTEOARTHRITIS
     Route: 065
     Dates: start: 19990323, end: 20000104

REACTIONS (1)
  - GASTRIC HAEMORRHAGE [None]
